FAERS Safety Report 13289416 (Version 1)
Quarter: 2017Q1

REPORT INFORMATION
  Report Type: Spontaneous
  Country: US (occurrence: US)
  Receive Date: 20170303
  Receipt Date: 20170303
  Transmission Date: 20170428
  Serious: No
  Sender: FDA-Public Use
  Company Number: US-BIOGEN-2017BI00362223

PATIENT
  Sex: Female

DRUGS (1)
  1. TYSABRI [Suspect]
     Active Substance: NATALIZUMAB
     Indication: MULTIPLE SCLEROSIS
     Route: 065
     Dates: start: 20070531, end: 20121127

REACTIONS (4)
  - Scar [Unknown]
  - Frustration tolerance decreased [Unknown]
  - Ill-defined disorder [Unknown]
  - Herpes zoster [Recovered/Resolved]
